FAERS Safety Report 6819378-4 (Version None)
Quarter: 2010Q3

REPORT INFORMATION
  Report Type: 
  Country: None (occurrence: None)
  Receive Date: 20100707
  Receipt Date: 20100628
  Transmission Date: 20110219
  Serious: Yes (Hospitalization)
  Sender: FDA-Public Use
  Company Number: TW-PFIZER INC-2010037327

PATIENT
  Age: 74 Year
  Sex: Male
  Weight: 63 kg

DRUGS (13)
  1. SUNITINIB MALATE [Suspect]
     Indication: HEPATIC NEOPLASM MALIGNANT
     Dosage: 25 MG, 1X/DAY
     Route: 048
     Dates: start: 20080912, end: 20100317
  2. CAPTOPRIL [Concomitant]
     Indication: HYPERTENSION
     Dosage: 6.25 MG, 2X/DAY
     Dates: start: 20100224, end: 20100322
  3. NIFEDIPINE [Concomitant]
     Indication: HYPERTENSION
     Dosage: 30 MG, 2X/DAY
     Dates: start: 20090403
  4. ACETAMINOPHEN [Concomitant]
     Indication: ABDOMINAL PAIN
     Dosage: 500 MG, 4X/DAY
     Dates: start: 20091104
  5. ALLOPURINOL [Concomitant]
     Indication: GOUT
     Dosage: 100 MG, 1X/DAY
     Dates: start: 20090712
  6. COLCHICINE [Concomitant]
     Indication: GOUT
     Dosage: 0.5 MG, 1X/DAY
     Dates: start: 20090712
  7. METOCLOPRAMIDE [Concomitant]
     Indication: VOMITING
     Dosage: 5 MG, 3X/DAY
     Dates: start: 20090710
  8. METOCLOPRAMIDE [Concomitant]
     Indication: NAUSEA
  9. MIRTAZAPINE [Concomitant]
     Indication: DEPRESSION
     Dosage: 15 MG, HS
     Dates: start: 20090923
  10. MEGESTROL ACETATE [Concomitant]
     Indication: DECREASED APPETITE
     Dosage: 4 ML, 1X/DAY
     Dates: start: 20100224, end: 20100322
  11. COUGH MIXTURE A [Concomitant]
     Indication: COUGH
     Dosage: 15 ML, PRN
     Dates: start: 20091230
  12. DEXTROMETHORPHAN [Concomitant]
     Indication: COUGH
     Dosage: 15 MG, 3X/DAY
     Dates: start: 20100310, end: 20100322
  13. AMBROXOL [Concomitant]
     Indication: COUGH
     Dosage: 30 MG, 3X/DAY
     Dates: start: 20100310, end: 20100322

REACTIONS (2)
  - RENAL FAILURE ACUTE [None]
  - SEPSIS [None]
